FAERS Safety Report 16728484 (Version 1)
Quarter: 2019Q3

REPORT INFORMATION
  Report Type: Spontaneous
  Country: US (occurrence: US)
  Receive Date: 20190704
  Receipt Date: 20190704
  Transmission Date: 20191005
  Serious: No
  Sender: FDA-Public Use
  Company Number: None

PATIENT
  Age: 79 Year
  Sex: Male
  Weight: 59 kg

DRUGS (1)
  1. PEMBROLIZUMAB. [Suspect]
     Active Substance: PEMBROLIZUMAB
     Indication: PROSTATE CANCER
     Route: 042
     Dates: start: 20190606, end: 20190606

REACTIONS (2)
  - Vision blurred [None]
  - Autoimmune uveitis [None]

NARRATIVE: CASE EVENT DATE: 20190606
